FAERS Safety Report 6543056-2 (Version None)
Quarter: 2010Q1

REPORT INFORMATION
  Report Type: 
  Country: None (occurrence: None)
  Receive Date: 20100120
  Receipt Date: 20100112
  Transmission Date: 20100710
  Serious: Yes (Hospitalization)
  Sender: FDA-Public Use
  Company Number: FR-ASTRAZENECA-2010SE01998

PATIENT
  Age: 65 Year
  Sex: Male

DRUGS (6)
  1. CRESTOR [Suspect]
     Indication: HYPERCHOLESTEROLAEMIA
     Route: 048
     Dates: start: 20080101, end: 20090101
  2. APROVEL [Suspect]
     Indication: HYPERTENSION
     Route: 048
     Dates: start: 20080101, end: 20090101
  3. ZANIDIP [Suspect]
     Indication: HYPERTENSION
     Route: 048
     Dates: start: 20080101, end: 20090101
  4. TEMERIT [Suspect]
     Indication: HYPERTENSION
     Route: 048
     Dates: start: 20080101, end: 20090101
  5. METFORMIN [Suspect]
     Indication: DIABETES MELLITUS
     Route: 048
     Dates: start: 20080101, end: 20090101
  6. METFORMIN [Suspect]
     Route: 048

REACTIONS (3)
  - LEUKOCYTOCLASTIC VASCULITIS [None]
  - SKIN LESION [None]
  - SKIN NECROSIS [None]
